FAERS Safety Report 9052229 (Version 2)
Quarter: 2013Q1

REPORT INFORMATION
  Report Type: Spontaneous
  Country: US (occurrence: US)
  Receive Date: 20130206
  Receipt Date: 20130319
  Transmission Date: 20140127
  Serious: Yes (Other)
  Sender: FDA-Public Use
  Company Number: PHEH2013US002919

PATIENT
  Sex: Male

DRUGS (2)
  1. EXELON PATCH [Suspect]
     Indication: DEMENTIA ALZHEIMER^S TYPE
     Dosage: 4.6 MG, DAILY
     Route: 062
     Dates: start: 201003
  2. EXELON PATCH [Suspect]
     Dosage: 9.5 MG, DAILY
     Route: 062

REACTIONS (2)
  - Cardiac failure congestive [Unknown]
  - Blood pressure decreased [Unknown]
